FAERS Safety Report 7411138-9 (Version None)
Quarter: 2011Q2

REPORT INFORMATION
  Report Type: 
  Country: None (occurrence: None)
  Receive Date: 20110413
  Receipt Date: 20100218
  Transmission Date: 20111010
  Serious: Yes (Death, Hospitalization)
  Sender: FDA-Public Use
  Company Number: US-BRISTOL-MYERS SQUIBB COMPANY-14985824

PATIENT
  Age: 65 Year
  Sex: Male

DRUGS (2)
  1. RADIATION THERAPY [Suspect]
     Indication: HEAD AND NECK CANCER
     Dosage: FORMULATION :IMRT RADIATION
     Dates: start: 20091001
  2. ERBITUX [Suspect]
     Indication: HEAD AND NECK CANCER
     Dates: start: 20091001

REACTIONS (5)
  - NEUTROPENIA [None]
  - NEOPLASM MALIGNANT [None]
  - SEPSIS [None]
  - SKIN EXFOLIATION [None]
  - RENAL FAILURE [None]
